FAERS Safety Report 16653499 (Version 3)
Quarter: 2019Q3

REPORT INFORMATION
  Report Type: Spontaneous
  Country: BE (occurrence: BE)
  Receive Date: 20190731
  Receipt Date: 20190923
  Transmission Date: 20191004
  Serious: Yes (Hospitalization, Other)
  Sender: FDA-Public Use
  Company Number: BE-PFIZER INC-2019327678

PATIENT
  Age: 60 Year
  Sex: Male
  Weight: 84 kg

DRUGS (2)
  1. CARBOPLATIN. [Suspect]
     Active Substance: CARBOPLATIN
     Indication: MESOTHELIOMA MALIGNANT
     Dosage: UNK
     Route: 065
     Dates: start: 201811, end: 201812
  2. PEMETREXED DISODIUM [Suspect]
     Active Substance: PEMETREXED DISODIUM
     Indication: MESOTHELIOMA MALIGNANT
     Dosage: UNK
     Route: 065
     Dates: start: 201811, end: 201812

REACTIONS (3)
  - Anaphylactic shock [Unknown]
  - Product use in unapproved indication [Unknown]
  - Off label use [Unknown]

NARRATIVE: CASE EVENT DATE: 201811
